FAERS Safety Report 4578931-1 (Version None)
Quarter: 2005Q1

REPORT INFORMATION
  Report Type: 
  Country: None (occurrence: None)
  Receive Date: 20050121
  Receipt Date: 20040708
  Transmission Date: 20050727
  Serious: Yes (Hospitalization)
  Sender: FDA-Public Use
  Company Number: PHBS2004US09117

PATIENT
  Age: 44 Year
  Sex: Male

DRUGS (1)
  1. LIORESAL [Suspect]
     Dosage: INTRATHECAL
     Route: 037

REACTIONS (3)
  - CONDITION AGGRAVATED [None]
  - MUSCLE SPASMS [None]
  - PAIN [None]
